FAERS Safety Report 13128625 (Version 2)
Quarter: 2017Q1

REPORT INFORMATION
  Report Type: Spontaneous
  Country: US (occurrence: US)
  Receive Date: 20170118
  Receipt Date: 20170302
  Transmission Date: 20170428
  Serious: No
  Sender: FDA-Public Use
  Company Number: US-LEO PHARMA-245429

PATIENT
  Sex: Male

DRUGS (3)
  1. HYDROCHLOROTHIAZIDE. [Concomitant]
     Active Substance: HYDROCHLOROTHIAZIDE
     Indication: HYPERTENSION
  2. METOPROLOL AND HYDROCHLORTHIAZIDE [Suspect]
     Active Substance: HYDROCHLOROTHIAZIDE\METOPROLOL
     Indication: HYPERTENSION
     Dosage: 50-25 MG
     Route: 048
  3. DAIVOBET [Suspect]
     Active Substance: BETAMETHASONE DIPROPIONATE\CALCIPOTRIENE
     Indication: PSORIASIS
     Route: 061
     Dates: start: 201611, end: 201701

REACTIONS (2)
  - Drug ineffective [Not Recovered/Not Resolved]
  - Application site erythema [Unknown]
